FAERS Safety Report 5122887-X (Version None)
Quarter: 2006Q4

REPORT INFORMATION
  Report Type: 
  Country: None (occurrence: None)
  Receive Date: 20061005
  Receipt Date: 20060922
  Transmission Date: 20070319
  Serious: Yes (Other)
  Sender: FDA-Public Use
  Company Number: 2006116384

PATIENT

DRUGS (1)
  1. LYRICA [Suspect]
     Indication: PAIN IN EXTREMITY
     Dates: start: 20060918

REACTIONS (3)
  - BALANCE DISORDER [None]
  - HYPOAESTHESIA [None]
  - HYPOAESTHESIA FACIAL [None]
